FAERS Safety Report 9510193 (Version 1)
Quarter: 2013Q3

REPORT INFORMATION
  Report Type: Spontaneous
  Country: US (occurrence: US)
  Receive Date: 20130909
  Receipt Date: 20130909
  Transmission Date: 20140515
  Serious: No
  Sender: FDA-Public Use
  Company Number: US-BRISTOL-MYERS SQUIBB COMPANY-18711036

PATIENT
  Age: 59 Year
  Sex: Male

DRUGS (2)
  1. ABILIFY [Suspect]
     Indication: DEPRESSION
     Dosage: THERAPY FROM: X ~1 YEAR.
  2. LAMICTAL [Suspect]
     Indication: DEPRESSION
     Dosage: 1 DF: 100.

REACTIONS (2)
  - Parkinsonism [Recovering/Resolving]
  - Tardive dyskinesia [Recovering/Resolving]
